FAERS Safety Report 11380994 (Version 1)
Quarter: 2015Q3

REPORT INFORMATION
  Report Type: Spontaneous
  Country: US (occurrence: US)
  Receive Date: 20150814
  Receipt Date: 20150814
  Transmission Date: 20151125
  Serious: Yes (Hospitalization)
  Sender: FDA-Public Use
  Company Number: US-BAYER-2015-397324

PATIENT
  Age: 46 Year
  Sex: Female

DRUGS (5)
  1. LORTAB [Concomitant]
     Active Substance: ACETAMINOPHEN\HYDROCODONE BITARTRATE
  2. NICOTROL [Concomitant]
     Active Substance: NICOTINE
  3. NICODERM CQ [Concomitant]
     Active Substance: NICOTINE
  4. NEXIUM [Concomitant]
     Active Substance: ESOMEPRAZOLE MAGNESIUM
  5. BEYAZ [Suspect]
     Active Substance: DROSPIRENONE\ETHINYL ESTRADIOL\LEVOMEFOLATE CALCIUM

REACTIONS (3)
  - Deep vein thrombosis [Recovered/Resolved]
  - Vena cava thrombosis [None]
  - Pelvic venous thrombosis [None]

NARRATIVE: CASE EVENT DATE: 20111014
